FAERS Safety Report 14386016 (Version 1)
Quarter: 2018Q1

REPORT INFORMATION
  Report Type: Spontaneous
  Country: US (occurrence: US)
  Receive Date: 20180115
  Receipt Date: 20180115
  Transmission Date: 20180509
  Serious: Yes (Other)
  Sender: FDA-Public Use
  Company Number: US-MALLINCKRODT-T201800066

PATIENT
  Age: 52 Year
  Sex: Female

DRUGS (3)
  1. HYDROCODONE/ACETAMINOPHEN [Suspect]
     Active Substance: ACETAMINOPHEN\HYDROCODONE
     Indication: PAIN
     Dosage: 5/650
     Route: 048
  2. HYDROCODONE/ACETAMINOPHEN [Suspect]
     Active Substance: ACETAMINOPHEN\HYDROCODONE
     Dosage: 10/325, TWICE DAILY AS NEEDED
     Route: 048
     Dates: end: 201712
  3. PREDNISONE. [Suspect]
     Active Substance: PREDNISONE
     Indication: PRODUCT USED FOR UNKNOWN INDICATION
     Dosage: UNK
     Route: 065

REACTIONS (17)
  - Conjunctivitis [Unknown]
  - Pharyngitis streptococcal [Unknown]
  - Bedridden [Unknown]
  - Pericarditis [Unknown]
  - Coeliac disease [Unknown]
  - Weight increased [Unknown]
  - Pain [Unknown]
  - Immune system disorder [Unknown]
  - Pneumonia [Unknown]
  - Malaise [Unknown]
  - Somnolence [Unknown]
  - Neuralgia [Unknown]
  - Hypertension [Unknown]
  - Vomiting [Unknown]
  - Fatigue [Unknown]
  - Back pain [Unknown]
  - Product quality issue [Unknown]

NARRATIVE: CASE EVENT DATE: 20150723
